FAERS Safety Report 8001172-2 (Version None)
Quarter: 2011Q4

REPORT INFORMATION
  Report Type: 
  Country: None (occurrence: None)
  Receive Date: 20111222
  Receipt Date: 20111214
  Transmission Date: 20120403
  Serious: Yes (Hospitalization, Other)
  Sender: FDA-Public Use
  Company Number: US-SANOFI-AVENTIS-2011SA071362

PATIENT
  Age: 61 Year
  Sex: Female
  Weight: 59.8 kg

DRUGS (25)
  1. LOVENOX [Suspect]
     Indication: THROMBOSIS
     Route: 058
     Dates: start: 20110824, end: 20110917
  2. GLIMEPIRIDE [Concomitant]
  3. PROCARDIA [Concomitant]
     Dates: end: 20110917
  4. LIPITOR [Concomitant]
  5. LORAZEPAM [Concomitant]
     Indication: ANXIETY
  6. CALCIUM [Concomitant]
  7. PROPRANOLOL [Concomitant]
     Indication: BLOOD PRESSURE
  8. FOLIC ACID [Concomitant]
  9. VICODIN [Concomitant]
  10. PROPRANOLOL [Concomitant]
     Indication: CHEST PAIN
  11. TRICOR [Concomitant]
  12. ASPIRIN [Concomitant]
     Indication: THROMBOSIS PROPHYLAXIS
  13. DIGOXIN [Concomitant]
  14. RANITIDINE [Concomitant]
  15. METHOTREXATE [Concomitant]
  16. PREDNISONE TAB [Concomitant]
     Indication: ARTHRITIS
  17. OMEPRAZOLE [Concomitant]
  18. COUMADIN [Concomitant]
  19. LASIX [Concomitant]
     Indication: SWELLING
     Dates: end: 20110917
  20. MINOCYCLINE HCL [Concomitant]
  21. LOVENOX [Suspect]
     Indication: THROMBOSIS PROPHYLAXIS
     Route: 058
     Dates: start: 20110824, end: 20110917
  22. ALL OTHER THERAPEUTIC PRODUCTS [Concomitant]
  23. LISINOPRIL [Concomitant]
  24. CREON [Concomitant]
     Dates: end: 20110917
  25. PROCHLORPERAZINE [Concomitant]

REACTIONS (8)
  - MALAISE [None]
  - LACERATION [None]
  - RECTAL HAEMORRHAGE [None]
  - INJECTION SITE HAEMATOMA [None]
  - FALL [None]
  - DIZZINESS [None]
  - HYPOTENSION [None]
  - DIARRHOEA [None]
